FAERS Safety Report 7417260-5 (Version None)
Quarter: 2011Q2

REPORT INFORMATION
  Report Type: 
  Country: None (occurrence: None)
  Receive Date: 20110415
  Receipt Date: 20110411
  Transmission Date: 20111010
  Serious: Yes (Hospitalization, Disabling, Other)
  Sender: FDA-Public Use
  Company Number: DE-SANOFI-AVENTIS-2011SA018128

PATIENT
  Age: 60 Year
  Sex: Female

DRUGS (8)
  1. ARAVA [Suspect]
     Indication: IMMUNOSUPPRESSION
     Route: 048
     Dates: start: 20100401, end: 20110309
  2. LEVOTHYROXINE SODIUM [Concomitant]
     Indication: HYPOTHYROIDISM
     Route: 048
  3. CALCIUM CARBONATE/COLECALCIFEROL [Concomitant]
     Dosage: 600/400 ONCE DAILY
     Route: 065
  4. OMEPRAZOLE [Concomitant]
     Route: 065
  5. FOLIC ACID [Concomitant]
     Route: 048
  6. ALENDRONATE SODIUM [Concomitant]
     Indication: OSTEOPOROSIS
     Route: 048
  7. METEX [Concomitant]
     Indication: IMMUNOSUPPRESSION
     Route: 048
  8. PREDNISOLONE [Concomitant]
     Route: 048

REACTIONS (1)
  - TOXIC ENCEPHALOPATHY [None]
